FAERS Safety Report 6145018-6 (Version None)
Quarter: 2009Q2

REPORT INFORMATION
  Report Type: 
  Country: None (occurrence: None)
  Receive Date: 20090401
  Receipt Date: 20090401
  Transmission Date: 20091009
  Serious: Yes (Other)
  Sender: FDA-Public Use
  Company Number: None

PATIENT
  Age: 52 Year
  Sex: Male
  Weight: 95.2554 kg

DRUGS (2)
  1. ADDERALL 5 [Suspect]
     Indication: ATTENTION DEFICIT/HYPERACTIVITY DISORDER
     Dosage: 15 MG BID PO, 2004 TO PRESENT
     Route: 048
     Dates: start: 20040101
  2. GENERIC VERSIONS SAME [Suspect]
     Dosage: SAME

REACTIONS (2)
  - ANURIA [None]
  - CONDITION AGGRAVATED [None]
